FAERS Safety Report 9151595 (Version 2)
Quarter: 2013Q3

REPORT INFORMATION
  Report Type: Spontaneous
  Country: US (occurrence: US)
  Receive Date: 20130308
  Receipt Date: 20130814
  Transmission Date: 20140515
  Serious: Yes (Other)
  Sender: FDA-Public Use
  Company Number: US-ROCHE-751314

PATIENT
  Age: 15 Year
  Sex: Male
  Weight: 79.4 kg

DRUGS (2)
  1. ACCUTANE [Suspect]
     Indication: ACNE
     Route: 065
     Dates: start: 199311, end: 199403
  2. ACCUTANE [Suspect]
     Route: 065

REACTIONS (8)
  - Crohn^s disease [Unknown]
  - Inflammatory bowel disease [Unknown]
  - Emotional distress [Unknown]
  - Anal abscess [Unknown]
  - Fatigue [Unknown]
  - Feeling of despair [Unknown]
  - Mood altered [Unknown]
  - White blood cell count increased [Unknown]
